FAERS Safety Report 8664598 (Version 3)
Quarter: 2012Q4

REPORT INFORMATION
  Report Type: 
  Country: US (occurrence: US)
  Receive Date: 20120713
  Receipt Date: 20121031
  Transmission Date: 20130627
  Serious: Yes (Hospitalization, Other)
  Sender: FDA-Public Use
  Company Number: US-BAYER-2012-069481

PATIENT
  Age: 47 Year
  Sex: Female

DRUGS (8)
  1. BETASERON [Suspect]
     Indication: MULTIPLE SCLEROSIS
     Dosage: 0.25 mg, QOD
     Route: 058
     Dates: start: 2007, end: 201206
  2. BETASERON [Suspect]
     Indication: MULTIPLE SCLEROSIS
     Dosage: 0.25 mg, QOD
     Route: 058
     Dates: start: 201207
  3. ALPRAZOLAM [Concomitant]
     Indication: ANXIETY
     Dosage: 5 mg, BID
     Dates: start: 2008
  4. CYMBALTA [Concomitant]
     Indication: ANXIETY
     Dosage: 60 mg, QAM
     Dates: start: 2008
  5. ARICEPT [Concomitant]
  6. SEROQUEL [Concomitant]
     Indication: DEPRESSION
     Dosage: 300 mg, at 5 PM
     Dates: start: 2008
  7. DONEPEZIL [Concomitant]
     Indication: ALZHEIMER^S DISEASE
     Dosage: 10 mg, AM
     Dates: start: 2008
  8. TRAMADOL [Concomitant]
     Indication: PAIN NOS
     Dosage: 50 mg Q 6 hours
     Dates: start: 2010

REACTIONS (8)
  - Multiple sclerosis relapse [Recovering/Resolving]
  - Hypoaesthesia [Recovering/Resolving]
  - Hemiparesis [Recovering/Resolving]
  - Abasia [Recovering/Resolving]
  - Dyskinesia [Recovering/Resolving]
  - Dysarthria [Recovering/Resolving]
  - Fungal infection [Recovering/Resolving]
  - Multiple sclerosis relapse [Recovered/Resolved]
